FAERS Safety Report 19756735 (Version 1)
Quarter: 2021Q3

REPORT INFORMATION
  Report Type: Spontaneous
  Country: CN (occurrence: CN)
  Receive Date: 20210828
  Receipt Date: 20210828
  Transmission Date: 20211014
  Serious: Yes (Other)
  Sender: FDA-Public Use
  Company Number: CN-ROCHE-2896367

PATIENT
  Age: 69 Year
  Sex: Male

DRUGS (12)
  1. OXALIPLATIN. [Concomitant]
     Active Substance: OXALIPLATIN
     Route: 041
     Dates: start: 20190614
  2. CALCIUM FOLINATE [Concomitant]
     Active Substance: LEUCOVORIN CALCIUM
     Route: 041
     Dates: start: 20190814
  3. FLUOROURACIL. [Concomitant]
     Active Substance: FLUOROURACIL
     Indication: COLON CANCER METASTATIC
     Dosage: 716MG AT DAY1 BY INTRAVENOUS DRIP, FLUOROURACIL 4296 MG AT DAY1 BR46H
     Dates: start: 20190601
  4. CAPECITABINE. [Concomitant]
     Active Substance: CAPECITABINE
     Indication: COLON CANCER METASTATIC
     Dosage: 2.5G IN THE MORNING/2G IN THE EVENING BY ORAL DAY1?14, PER 3 WEEKS
     Route: 065
     Dates: start: 20200311, end: 20200603
  5. CAPECITABINE. [Concomitant]
     Active Substance: CAPECITABINE
     Dosage: 2G IN THE MORNING/1.5G IN THE EVENING BY ORAL DAY1?14, PER 3 WEEKS
     Dates: start: 20200629, end: 20200719
  6. CALCIUM FOLINATE [Concomitant]
     Active Substance: LEUCOVORIN CALCIUM
     Route: 041
     Dates: start: 20190614
  7. FLUOROURACIL. [Concomitant]
     Active Substance: FLUOROURACIL
     Dosage: 692MG AT DAY1 BY INTRAVENOUS DRIP, FLUOROURACIL 4152MG AT DAY1 BR46H
     Dates: start: 20190814
  8. OXALIPLATIN. [Concomitant]
     Active Substance: OXALIPLATIN
     Indication: COLON CANCER METASTATIC
     Route: 041
     Dates: start: 20190601
  9. OXALIPLATIN. [Concomitant]
     Active Substance: OXALIPLATIN
     Route: 041
     Dates: start: 20190814
  10. AVASTIN [Suspect]
     Active Substance: BEVACIZUMAB
     Indication: COLON CANCER METASTATIC
     Route: 041
     Dates: start: 20190814
  11. CALCIUM FOLINATE [Concomitant]
     Active Substance: LEUCOVORIN CALCIUM
     Indication: COLON CANCER METASTATIC
     Route: 041
     Dates: start: 20190601
  12. FLUOROURACIL. [Concomitant]
     Active Substance: FLUOROURACIL
     Dosage: 716MG AT DAY1 BY INTRAVENOUS DRIP, FLUOROURACIL 4296 MG AT DAY1 BR46H
     Dates: start: 20190614

REACTIONS (3)
  - Agranulocytosis [Unknown]
  - Palmar-plantar erythrodysaesthesia syndrome [Unknown]
  - Pyrexia [Unknown]
